FAERS Safety Report 5708679-9 (Version None)
Quarter: 2008Q2

REPORT INFORMATION
  Report Type: 
  Country: None (occurrence: None)
  Receive Date: 20080417
  Receipt Date: 20080416
  Transmission Date: 20081010
  Serious: Yes (Death, Hospitalization)
  Sender: FDA-Public Use
  Company Number: JP-BOEHRINGER INGELHEIM GMBH, GERMANY-2008-BP-05987NB

PATIENT
  Sex: Female

DRUGS (8)
  1. MICARDIS [Suspect]
     Indication: HYPERTENSION
     Route: 048
     Dates: start: 20061226, end: 20070602
  2. LASIX [Concomitant]
     Route: 048
     Dates: end: 20071127
  3. ASPIRIN [Concomitant]
     Route: 048
     Dates: end: 20071127
  4. WARFARIN SODIUM [Concomitant]
     Route: 048
     Dates: start: 20070401, end: 20071101
  5. LANIRAPID [Concomitant]
     Route: 048
     Dates: start: 20070330, end: 20071101
  6. MAINTATE [Concomitant]
     Route: 048
     Dates: start: 20070406, end: 20071101
  7. PANALDINE [Concomitant]
     Route: 048
     Dates: start: 20070413, end: 20071101
  8. ALLOPURINOL [Concomitant]
     Route: 048
     Dates: start: 20070518, end: 20071101

REACTIONS (4)
  - BLOOD PRESSURE DECREASED [None]
  - CARDIAC FAILURE [None]
  - MYOCARDIAL INFARCTION [None]
  - SUDDEN DEATH [None]
